FAERS Safety Report 10653516 (Version 1)
Quarter: 2014Q4

REPORT INFORMATION
  Report Type: Spontaneous
  Country: FR (occurrence: FR)
  Receive Date: 20141216
  Receipt Date: 20141216
  Transmission Date: 20150529
  Serious: Yes (Other)
  Sender: FDA-Public Use
  Company Number: FR-AUROBINDO-AUR-APL-2014-12927

PATIENT
  Age: 82 Year
  Sex: Male

DRUGS (3)
  1. DIGOXIN. [Suspect]
     Active Substance: DIGOXIN
     Indication: PRODUCT USED FOR UNKNOWN INDICATION
     Dosage: UNK
     Route: 065
  2. ZOLPIDEM [Suspect]
     Active Substance: ZOLPIDEM\ZOLPIDEM TARTRATE
     Indication: PRODUCT USED FOR UNKNOWN INDICATION
     Dosage: UNK
     Route: 065
  3. TROSPIUM CHLORIDE. [Suspect]
     Active Substance: TROSPIUM CHLORIDE
     Indication: HYPERTONIC BLADDER
     Dosage: UNK
     Route: 048

REACTIONS (3)
  - Bradycardia [Unknown]
  - Hallucination [Recovering/Resolving]
  - Confusional state [Recovering/Resolving]
